FAERS Safety Report 5299471-0 (Version None)
Quarter: 2007Q2

REPORT INFORMATION
  Report Type: 
  Country: None (occurrence: None)
  Receive Date: 20070417
  Receipt Date: 20070406
  Transmission Date: 20071010
  Serious: Yes (Other)
  Sender: FDA-Public Use
  Company Number: US-ELI_LILLY_AND_COMPANY-US200704001548

PATIENT
  Sex: Female

DRUGS (2)
  1. ALIMTA [Suspect]
     Indication: NON-SMALL CELL LUNG CANCER
     Dosage: UNK, UNK
     Route: 042
  2. DECADRON                                /CAN/ [Concomitant]
     Indication: PROPHYLAXIS
     Dosage: UNK, OTHER
     Route: 042

REACTIONS (1)
  - ANAPHYLACTIC REACTION [None]
